FAERS Safety Report 21903514 (Version 1)
Quarter: 2023Q1

REPORT INFORMATION
  Report Type: Spontaneous
  Country: US (occurrence: US)
  Receive Date: 20230124
  Receipt Date: 20230124
  Transmission Date: 20230418
  Serious: Yes (Other)
  Sender: FDA-Public Use
  Company Number: US-PROCTER_AND_GAMBLE-GS23004953

PATIENT
  Age: 16 Year
  Sex: Female

DRUGS (2)
  1. CREST PRO-HEALTH RINSE [Suspect]
     Active Substance: CETYLPYRIDINIUM CHLORIDE
     Route: 002
  2. Warm salt water [Concomitant]

REACTIONS (3)
  - Hypersensitivity [Unknown]
  - Obstructive airways disorder [Unknown]
  - Swelling face [Recovering/Resolving]
